FAERS Safety Report 16860250 (Version 1)
Quarter: 2019Q3

REPORT INFORMATION
  Report Type: Spontaneous
  Country: US (occurrence: US)
  Receive Date: 20190927
  Receipt Date: 20190927
  Transmission Date: 20191005
  Serious: Yes (Death, Other)
  Sender: FDA-Public Use
  Company Number: US-PFIZER INC-2019414396

PATIENT
  Age: 74 Year
  Sex: Male

DRUGS (1)
  1. LORBRENA [Suspect]
     Active Substance: LORLATINIB
     Dosage: 100 MG, UNK

REACTIONS (3)
  - Blister [Recovered/Resolved]
  - Peripheral swelling [Recovered/Resolved]
  - Neoplasm progression [Fatal]
